FAERS Safety Report 25235050 (Version 1)
Quarter: 2025Q2

REPORT INFORMATION
  Report Type: Report from Study
  Country: IN (occurrence: IN)
  Receive Date: 20250424
  Receipt Date: 20250424
  Transmission Date: 20250716
  Serious: Yes (Death)
  Sender: ROCHE
  Company Number: IN-ROCHE-10000040018

PATIENT
  Age: 33 Year
  Sex: Male
  Weight: 58.2 kg

DRUGS (4)
  1. TECENTRIQ [Suspect]
     Active Substance: ATEZOLIZUMAB
     Indication: Non-small cell lung cancer metastatic
     Route: 042
     Dates: start: 20240607
  2. TECENTRIQ [Suspect]
     Active Substance: ATEZOLIZUMAB
     Dosage: AS PER THE INFORMATION RECEIVED FROM THE PATIENT^S INFUSION SUMMARY SHEET, THE PATIENT^S 3RD CYCLE O
     Route: 042
  3. TECENTRIQ [Suspect]
     Active Substance: ATEZOLIZUMAB
     Dosage: AS PER THE INFORMATION RECEIVED FROM THE PATIENT^S INFUSION SUMMARY SHEET, THE PATIENT^S 5TH CYCLE O
     Route: 042
  4. TECENTRIQ [Suspect]
     Active Substance: ATEZOLIZUMAB
     Dosage: AS PER THE INFORMATION RECEIVED FROM THE PATIENT^S INFUSION SUMMARY SHEET, THE PATIENT^S 10TH CYCLE
     Route: 042

REACTIONS (10)
  - Off label use [Unknown]
  - Hypertension [Unknown]
  - Pyrexia [Unknown]
  - Hypotension [Unknown]
  - Dyspnoea exertional [Unknown]
  - Back pain [Unknown]
  - Haemoglobin decreased [Unknown]
  - Neck pain [Unknown]
  - Chest pain [Unknown]
  - Death [Fatal]
